FAERS Safety Report 23512434 (Version 1)
Quarter: 2024Q1

REPORT INFORMATION
  Report Type: Spontaneous
  Country: US (occurrence: US)
  Receive Date: 20240212
  Receipt Date: 20240212
  Transmission Date: 20240410
  Serious: Yes (Other)
  Sender: FDA-Public Use
  Company Number: US-BAYER-2024A018314

PATIENT
  Age: 5 Year
  Sex: Female

DRUGS (1)
  1. MIRALAX [Suspect]
     Active Substance: POLYETHYLENE GLYCOL 3350
     Dosage: 34 G, BID
     Route: 048
     Dates: start: 20240123, end: 20240126

REACTIONS (4)
  - Oscillopsia [Recovered/Resolved]
  - Paranoia [Recovered/Resolved]
  - Irritability [Recovered/Resolved]
  - Mood swings [Recovered/Resolved]

NARRATIVE: CASE EVENT DATE: 20240126
